FAERS Safety Report 5810125-1 (Version None)
Quarter: 2008Q3

REPORT INFORMATION
  Report Type: 
  Country: None (occurrence: None)
  Receive Date: 20080715
  Receipt Date: 20070629
  Transmission Date: 20090109
  Serious: No
  Sender: FDA-Public Use
  Company Number: A0661013A

PATIENT
  Age: 53 Year
  Sex: Female

DRUGS (8)
  1. IMITREX [Suspect]
     Indication: DRUG USE FOR UNKNOWN INDICATION
     Dosage: 100MG AS REQUIRED
     Route: 048
     Dates: start: 20030101
  2. ALCOHOL [Suspect]
     Route: 048
     Dates: start: 20070401, end: 20070401
  3. ESGIC [Concomitant]
  4. LEXAPRO [Concomitant]
  5. HYDROCHLOROTHIAZIDE [Concomitant]
  6. ZETIA [Concomitant]
  7. ZOCOR [Concomitant]
  8. ALCOHOL [Concomitant]

REACTIONS (3)
  - ALCOHOL INTOLERANCE [None]
  - ANGER [None]
  - PERSONALITY CHANGE [None]
